FAERS Safety Report 18804406 (Version 1)
Quarter: 2021Q1

REPORT INFORMATION
  Report Type: Spontaneous
  Country: US (occurrence: US)
  Receive Date: 20210129
  Receipt Date: 20210129
  Transmission Date: 20210419
  Serious: Yes (Life-Threatening, Hospitalization)
  Sender: FDA-Public Use
  Company Number: US-UCBSA-2020010121

PATIENT
  Age: 21 Year
  Sex: Female
  Weight: 52 kg

DRUGS (2)
  1. KEPPRA [Suspect]
     Active Substance: LEVETIRACETAM
     Indication: PARTIAL SEIZURES
     Dosage: 500 MILLIGRAM, 2X/DAY (BID)
     Route: 048
     Dates: start: 20181220, end: 20200106
  2. KEPPRA [Suspect]
     Active Substance: LEVETIRACETAM
     Indication: SEIZURE

REACTIONS (4)
  - Anxiety [Recovering/Resolving]
  - Depression [Recovered/Resolved]
  - Panic attack [Recovered/Resolved]
  - Irritability [Recovering/Resolving]

NARRATIVE: CASE EVENT DATE: 20181225
